FAERS Safety Report 18342057 (Version 1)
Quarter: 2020Q4

REPORT INFORMATION
  Report Type: Spontaneous
  Country: US (occurrence: US)
  Receive Date: 20201005
  Receipt Date: 20201005
  Transmission Date: 20210113
  Serious: No
  Sender: FDA-Public Use
  Company Number: US-GW PHARMA-202009USGW03308

PATIENT

DRUGS (2)
  1. EPIDIOLEX [Suspect]
     Active Substance: CANNABIDIOL
     Indication: STATUS EPILEPTICUS
     Dosage: 650 MILLIGRAM, QD (3 ML IN MORNING AND 3.5 ML IN EVENING)
     Route: 048
     Dates: start: 202003
  2. EPIDIOLEX [Suspect]
     Active Substance: CANNABIDIOL
     Indication: LENNOX-GASTAUT SYNDROME
     Dosage: 530 MILLIGRAM, QD (2.3 ML IN MORNING AND 3 ML IN EVENING)
     Route: 048
     Dates: start: 20200326, end: 202003

REACTIONS (2)
  - Irritability [Recovering/Resolving]
  - Head banging [Recovering/Resolving]

NARRATIVE: CASE EVENT DATE: 202003
